FAERS Safety Report 11067747 (Version 1)
Quarter: 2015Q2

REPORT INFORMATION
  Report Type: Spontaneous
  Country: US (occurrence: US)
  Receive Date: 20150427
  Receipt Date: 20150427
  Transmission Date: 20150821
  Serious: Yes (Hospitalization)
  Sender: FDA-Public Use
  Company Number: US-AMGEN-USASP2015039394

PATIENT
  Age: 49 Year
  Sex: Female

DRUGS (1)
  1. ENBREL [Suspect]
     Active Substance: ETANERCEPT
     Indication: PSORIATIC ARTHROPATHY
     Dosage: 50 MG, QWK
     Route: 065
     Dates: start: 20140303

REACTIONS (4)
  - Urinary tract infection [Not Recovered/Not Resolved]
  - Arthritis [Not Recovered/Not Resolved]
  - Disease complication [Not Recovered/Not Resolved]
  - Liver disorder [Not Recovered/Not Resolved]
